FAERS Safety Report 25207089 (Version 1)
Quarter: 2025Q2

REPORT INFORMATION
  Report Type: Spontaneous
  Country: US (occurrence: US)
  Receive Date: 20250417
  Receipt Date: 20250417
  Transmission Date: 20250717
  Serious: Yes (Other)
  Sender: HIKMA
  Company Number: US-HIKMA PHARMACEUTICALS USA INC.-US-H14001-25-03225

PATIENT
  Age: 50 Year
  Sex: Female

DRUGS (2)
  1. AMPHETAMINE [Suspect]
     Active Substance: AMPHETAMINE
     Indication: Product used for unknown indication
     Route: 065
  2. METHAMPHETAMINE [Suspect]
     Active Substance: METHAMPHETAMINE
     Indication: Product used for unknown indication
     Route: 065

REACTIONS (6)
  - Logorrhoea [Unknown]
  - Gait disturbance [Unknown]
  - Balance disorder [Unknown]
  - Toxicity to various agents [Unknown]
  - Drug abuse [Unknown]
  - Legal problem [Unknown]
